FAERS Safety Report 4963105-2 (Version None)
Quarter: 2006Q2

REPORT INFORMATION
  Report Type: 
  Country: None (occurrence: None)
  Receive Date: 20060405
  Receipt Date: 20060331
  Transmission Date: 20061013
  Serious: Yes (Other)
  Sender: FDA-Public Use
  Company Number: FR-GLAXOSMITHKLINE-B0418693A

PATIENT
  Sex: Male

DRUGS (4)
  1. AVANDIA [Suspect]
     Dosage: 4MG PER DAY
     Route: 048
  2. AMARYL [Suspect]
     Route: 065
  3. VASTAREL [Suspect]
     Route: 065
  4. ELISOR [Suspect]
     Route: 065

REACTIONS (1)
  - GRANULOCYTOPENIA [None]
